FAERS Safety Report 6063411-7 (Version None)
Quarter: 2009Q1

REPORT INFORMATION
  Report Type: 
  Country: None (occurrence: None)
  Receive Date: 20090203
  Receipt Date: 20090123
  Transmission Date: 20090719
  Serious: Yes (Hospitalization)
  Sender: FDA-Public Use
  Company Number: DE-AMGEN-US325078

PATIENT
  Sex: Male
  Weight: 90 kg

DRUGS (12)
  1. ENBREL [Suspect]
     Indication: RHEUMATOID ARTHRITIS
     Route: 058
     Dates: start: 20071030
  2. PREDNISOLONE [Suspect]
     Indication: RHEUMATOID ARTHRITIS
     Dosage: 7.0 - 11.0 MG ONCE DAILY
     Route: 048
     Dates: start: 20020801, end: 20080901
  3. PREDNISOLONE [Suspect]
     Dosage: UNKNOWN, PULSE THERAPY
     Route: 048
     Dates: start: 20080901, end: 20081001
  4. PREDNISOLONE [Suspect]
     Route: 048
     Dates: start: 20081001
  5. BISOPROLOL [Concomitant]
     Indication: HYPERTENSION
     Route: 048
     Dates: start: 20000101
  6. ALLOPURINOL [Concomitant]
  7. FENOFIBRATE [Concomitant]
  8. ACETYLSALICYLIC ACID SRT [Concomitant]
  9. PANTOPRAZOLE [Concomitant]
  10. CALCIMAGON [Concomitant]
  11. LOSARTAN POTASSIUM [Concomitant]
  12. PENTAERITHRITYL TETRANITRATE [Concomitant]

REACTIONS (1)
  - TRANSIENT ISCHAEMIC ATTACK [None]
